FAERS Safety Report 4700716-3 (Version None)
Quarter: 2005Q2

REPORT INFORMATION
  Report Type: 
  Country: None (occurrence: None)
  Receive Date: 20050627
  Receipt Date: 20050609
  Transmission Date: 20051028
  Serious: Yes (Life-Threatening)
  Sender: FDA-Public Use
  Company Number: 2005FR-00025

PATIENT
  Age: 39 Year
  Sex: Male

DRUGS (1)
  1. RANITIDINE [Suspect]
     Indication: DUODENAL ULCER
     Dosage: 150MG,BID,ORAL
     Route: 048
     Dates: start: 20050420, end: 20050504

REACTIONS (5)
  - CONFUSIONAL STATE [None]
  - HALLUCINATION, AUDITORY [None]
  - MAJOR DEPRESSION [None]
  - OBSESSIVE-COMPULSIVE DISORDER [None]
  - SUICIDAL IDEATION [None]
